FAERS Safety Report 8119142-2 (Version None)
Quarter: 2012Q1

REPORT INFORMATION
  Report Type: 
  Country: None (occurrence: None)
  Receive Date: 20120207
  Receipt Date: 20120207
  Transmission Date: 20120608
  Serious: Yes (Life-Threatening, Hospitalization)
  Sender: FDA-Public Use
  Company Number: None

PATIENT
  Sex: Female
  Weight: 89.811 kg

DRUGS (1)
  1. BEYAZ [Suspect]
     Indication: CONTRACEPTION
     Dosage: ONE TABLET
     Route: 048
     Dates: start: 20111109, end: 20120226

REACTIONS (2)
  - PULMONARY EMBOLISM [None]
  - CHEST PAIN [None]
